FAERS Safety Report 24894352 (Version 1)
Quarter: 2025Q1

REPORT INFORMATION
  Report Type: Spontaneous
  Country: US (occurrence: US)
  Receive Date: 20250128
  Receipt Date: 20250128
  Transmission Date: 20250409
  Serious: No
  Sender: TEVA
  Company Number: US-TEVA-VS-3178288

PATIENT
  Age: 77 Year
  Sex: Female

DRUGS (2)
  1. AUSTEDO XR [Suspect]
     Active Substance: DEUTETRABENAZINE
     Indication: Product used for unknown indication
     Dosage: AUSTEDO XR 24MG 1 TABLET BY MOUTH TWICE DAILY
     Route: 048
  2. AUSTEDO XR [Suspect]
     Active Substance: DEUTETRABENAZINE
     Indication: Product used for unknown indication
     Dosage: 2 TABLETS BY MOUTH DAILY
     Route: 048

REACTIONS (7)
  - Excessive eye blinking [Unknown]
  - Product dose omission issue [Unknown]
  - Grimacing [Unknown]
  - Tongue biting [Unknown]
  - Dyskinesia [Unknown]
  - Off label use [Unknown]
  - Stress [Unknown]

NARRATIVE: CASE EVENT DATE: 20240301
